FAERS Safety Report 10726653 (Version 1)
Quarter: 2015Q1

REPORT INFORMATION
  Report Type: Spontaneous
  Country: US (occurrence: None)
  Receive Date: 20150120
  Receipt Date: 20150120
  Transmission Date: 20150721
  Serious: No
  Sender: FDA-Public Use
  Company Number: None

PATIENT
  Age: 51 Year
  Sex: Male
  Weight: 111 kg

DRUGS (4)
  1. NORVASC [Concomitant]
     Active Substance: AMLODIPINE BESYLATE
  2. COREG [Concomitant]
     Active Substance: CARVEDILOL
  3. OXYCODONE [Concomitant]
     Active Substance: OXYCODONE
  4. MODAFINIL 100 MG AMERICAN HEALTH [Suspect]
     Active Substance: MODAFINIL
     Indication: CEREBRAL HAEMORRHAGE
     Route: 048
     Dates: start: 20150106, end: 20150116

REACTIONS (1)
  - Blood pressure increased [None]

NARRATIVE: CASE EVENT DATE: 20150116
